FAERS Safety Report 6598083-6 (Version None)
Quarter: 2010Q1

REPORT INFORMATION
  Report Type: 
  Country: None (occurrence: None)
  Receive Date: 20100216
  Receipt Date: 20100208
  Transmission Date: 20100710
  Serious: Yes (Hospitalization, Other)
  Sender: FDA-Public Use
  Company Number: 2010SP004608

PATIENT
  Age: 39 Year
  Sex: Female

DRUGS (19)
  1. TEMOZOLOMIDE [Suspect]
     Indication: METASTATIC MALIGNANT MELANOMA
     Dosage: 355 MG; PO, 355 MG; PO
     Route: 048
     Dates: start: 20091014, end: 20091018
  2. TEMOZOLOMIDE [Suspect]
     Indication: METASTATIC MALIGNANT MELANOMA
     Dosage: 355 MG; PO, 355 MG; PO
     Route: 048
     Dates: start: 20091111, end: 20091115
  3. ABT-888 (INVESTIGATIONAL DRUG) [Suspect]
     Dosage: 40 MG, 40 MG
     Dates: start: 20091014, end: 20091020
  4. ABT-888 (INVESTIGATIONAL DRUG) [Suspect]
     Dosage: 40 MG, 40 MG
     Dates: start: 20091111, end: 20091117
  5. TRAZODONE HCL [Concomitant]
  6. CITALOPRAM [Concomitant]
  7. PARACETAMOL [Concomitant]
  8. LANSOPRAZOLE [Concomitant]
  9. SENNA ALEXANDRINA [Concomitant]
  10. DEXAMETHASONE [Concomitant]
  11. MORPHINE SULFATE [Concomitant]
  12. PROCHLORPERAZINE [Concomitant]
  13. SODIUM CHLORIDE [Concomitant]
  14. CIPROFLOXACIN LACTATE [Concomitant]
  15. INDOMETHACIN [Concomitant]
  16. ONDANSETRON [Concomitant]
  17. DIMENHYDRINATE [Concomitant]
  18. AMOXICILLIN [Concomitant]
  19. MOXIFLOXACIN HCL [Concomitant]

REACTIONS (5)
  - FEBRILE NEUTROPENIA [None]
  - HYPOTENSION [None]
  - MALIGNANT NEOPLASM PROGRESSION [None]
  - METASTATIC MALIGNANT MELANOMA [None]
  - PLEURAL EFFUSION [None]
